FAERS Safety Report 20033712 (Version 1)
Quarter: 2021Q4

REPORT INFORMATION
  Report Type: Report from Study
  Country: MX (occurrence: MX)
  Receive Date: 20211104
  Receipt Date: 20211104
  Transmission Date: 20220303
  Serious: Yes (Hospitalization, Other)
  Sender: FDA-Public Use
  Company Number: MX-002147023-NVSC2021MX175398

PATIENT
  Age: 52 Year
  Sex: Female
  Weight: 73 kg

DRUGS (5)
  1. ERENUMAB [Suspect]
     Active Substance: ERENUMAB
     Indication: Migraine
     Dosage: 1 DF, QMO (70 MG)
     Route: 065
     Dates: start: 20190501
  2. ERENUMAB [Suspect]
     Active Substance: ERENUMAB
     Dosage: 2 DF, QMO (70 MG)
     Route: 058
     Dates: start: 202104
  3. DULOXETINE [Concomitant]
     Active Substance: DULOXETINE
     Indication: Anxiety
     Dosage: 30 MG, QD (START DATE: 1 MONTH AGO)
     Route: 048
  4. DULOXETINE [Concomitant]
     Active Substance: DULOXETINE
     Indication: Depression
  5. CALCIUM [Concomitant]
     Active Substance: CALCIUM
     Indication: Menopause
     Dosage: 1 DF, QD
     Route: 048
     Dates: start: 2019

REACTIONS (8)
  - Abdominal pain upper [Unknown]
  - Gastrooesophageal reflux disease [Unknown]
  - Hiatus hernia [Recovered/Resolved]
  - Injection site pain [Unknown]
  - Migraine [Unknown]
  - Drug ineffective [Recovered/Resolved]
  - Product prescribing error [Unknown]
  - Stress [Recovered/Resolved]

NARRATIVE: CASE EVENT DATE: 20200401
